FAERS Safety Report 20324235 (Version 6)
Quarter: 2022Q1

REPORT INFORMATION
  Report Type: Spontaneous
  Country: PL (occurrence: PL)
  Receive Date: 20220111
  Receipt Date: 20220310
  Transmission Date: 20220423
  Serious: Yes (Life-Threatening, Hospitalization, Other)
  Sender: FDA-Public Use
  Company Number: PL-LESVI-2021000728

PATIENT
  Age: 45 Year
  Sex: Male

DRUGS (11)
  1. QUETIAPINE [Suspect]
     Active Substance: QUETIAPINE
     Indication: Bipolar disorder
     Dosage: UNK, THE PATIENT WAS TAKING VALPROIC ACID IN THE CHRONIC SETTING.
     Route: 065
  2. LITHIUM [Concomitant]
     Active Substance: LITHIUM
     Indication: Bipolar disorder
     Dosage: UNK, THE PATIENT WAS TAKING LITHIUM IN THE CHRONIC SETTING.
     Route: 065
  3. CARBAMAZEPINE [Concomitant]
     Active Substance: CARBAMAZEPINE
     Indication: Bipolar disorder
     Dosage: UNK, THE PATIENT WAS TAKING CARBAMAZEPINE IN THE CHRONIC SETTING.
     Route: 065
  4. VALPROIC ACID [Concomitant]
     Active Substance: VALPROIC ACID
     Indication: Bipolar disorder
     Dosage: UNK, THE PATIENT WAS TAKING VALPROIC ACID IN THE CHRONIC SETTING.
     Route: 065
  5. METAMIZOL [Concomitant]
     Active Substance: METAMIZOLE SODIUM
     Indication: Analgesic therapy
     Dosage: UNK
  6. CIPROFLOXACIN [Concomitant]
     Active Substance: CIPROFLOXACIN
     Indication: Antibiotic therapy
     Dosage: UNK
     Route: 065
  7. CIPROFLOXACIN [Concomitant]
     Active Substance: CIPROFLOXACIN
     Indication: Antibiotic prophylaxis
  8. THIETHYLPERAZINE [Concomitant]
     Active Substance: THIETHYLPERAZINE
     Indication: Antiemetic supportive care
     Dosage: UNK
  9. METRONIDAZOLE [Concomitant]
     Active Substance: METRONIDAZOLE
     Indication: Antibiotic therapy
     Dosage: UNK
     Route: 065
  10. METRONIDAZOLE [Concomitant]
     Active Substance: METRONIDAZOLE
     Indication: Antibiotic prophylaxis
  11. METOCLOPRAMIDE [Concomitant]
     Active Substance: METOCLOPRAMIDE
     Indication: Antiemetic supportive care
     Dosage: UNK

REACTIONS (3)
  - Intestinal ischaemia [Recovering/Resolving]
  - Colitis ischaemic [Unknown]
  - Rotavirus infection [Recovering/Resolving]
